FAERS Safety Report 20392582 (Version 2)
Quarter: 2022Q1

REPORT INFORMATION
  Report Type: Report from Study
  Country: TW (occurrence: TW)
  Receive Date: 20220128
  Receipt Date: 20220131
  Transmission Date: 20220423
  Serious: Yes (Life-Threatening, Hospitalization)
  Sender: FDA-Public Use
  Company Number: TR-AstraZeneca-2022A038372

PATIENT
  Age: 81 Year
  Sex: Female

DRUGS (15)
  1. TRASTUZUMAB DERUXTECAN [Suspect]
     Active Substance: TRASTUZUMAB DERUXTECAN
     Indication: HER2 positive breast cancer
     Dosage: 5.4 MG/KG, ONCE EVERY 3 WK
     Route: 042
     Dates: start: 20210820, end: 20210820
  2. TRASTUZUMAB DERUXTECAN [Suspect]
     Active Substance: TRASTUZUMAB DERUXTECAN
     Dosage: 5.4 MG/KG, ONCE EVERY 3 WK
     Route: 042
     Dates: start: 20210910, end: 20210910
  3. TRASTUZUMAB DERUXTECAN [Suspect]
     Active Substance: TRASTUZUMAB DERUXTECAN
     Dosage: 5.4 MG/KG, ONCE EVERY 3 WK
     Route: 042
     Dates: start: 20211001, end: 20211001
  4. TRASTUZUMAB DERUXTECAN [Suspect]
     Active Substance: TRASTUZUMAB DERUXTECAN
     Dosage: 5.4 MG/KG, ONCE EVERY 3 WK
     Route: 042
     Dates: start: 20211022, end: 20211022
  5. TRASTUZUMAB DERUXTECAN [Suspect]
     Active Substance: TRASTUZUMAB DERUXTECAN
     Dosage: 5.4 MG/KG, ONCE EVERY 3 WK
     Route: 042
     Dates: start: 20211112, end: 20211112
  6. TRASTUZUMAB DERUXTECAN [Suspect]
     Active Substance: TRASTUZUMAB DERUXTECAN
     Dosage: 5.4 MG/KG, ONCE EVERY 3 WK
     Route: 042
     Dates: start: 20211203, end: 20211203
  7. TRASTUZUMAB DERUXTECAN [Suspect]
     Active Substance: TRASTUZUMAB DERUXTECAN
     Dosage: 5.4 MG/KG, ONCE EVERY 3 WK
     Route: 042
     Dates: start: 20211224, end: 20211224
  8. PERTUZUMAB [Suspect]
     Active Substance: PERTUZUMAB
     Indication: HER2 positive breast cancer
     Dosage: LOADING DOSE OF 840 MG INTRAVENOUSLY ON DAY 1 OF CYCLE 1, FOLLOWED BY 420 MG Q3W IN SUBSEQUENT CYCLE
     Route: 042
     Dates: start: 20210820, end: 20210820
  9. PERTUZUMAB [Suspect]
     Active Substance: PERTUZUMAB
     Dosage: LOADING DOSE OF 840 MG INTRAVENOUSLY ON DAY 1 OF CYCLE 1, FOLLOWED BY 420 MG Q3W IN SUBSEQUENT CYCLE
     Route: 042
     Dates: start: 20210910, end: 20210910
  10. PERTUZUMAB [Suspect]
     Active Substance: PERTUZUMAB
     Dosage: LOADING DOSE OF 840 MG INTRAVENOUSLY ON DAY 1 OF CYCLE 1, FOLLOWED BY 420 MG Q3W IN SUBSEQUENT CYCLE
     Route: 042
     Dates: start: 20211001, end: 20211001
  11. PERTUZUMAB [Suspect]
     Active Substance: PERTUZUMAB
     Dosage: LOADING DOSE OF 840 MG INTRAVENOUSLY ON DAY 1 OF CYCLE 1, FOLLOWED BY 420 MG Q3W IN SUBSEQUENT CYCLE
     Route: 042
     Dates: start: 20211022, end: 20211022
  12. PERTUZUMAB [Suspect]
     Active Substance: PERTUZUMAB
     Dosage: LOADING DOSE OF 840 MG INTRAVENOUSLY ON DAY 1 OF CYCLE 1, FOLLOWED BY 420 MG Q3W IN SUBSEQUENT CYCLE
     Route: 042
     Dates: start: 20211112, end: 20211112
  13. PERTUZUMAB [Suspect]
     Active Substance: PERTUZUMAB
     Dosage: LOADING DOSE OF 840 MG INTRAVENOUSLY ON DAY 1 OF CYCLE 1, FOLLOWED BY 420 MG Q3W IN SUBSEQUENT CYCLE
     Route: 042
     Dates: start: 20211203, end: 20211203
  14. PERTUZUMAB [Suspect]
     Active Substance: PERTUZUMAB
     Dosage: LOADING DOSE OF 840 MG INTRAVENOUSLY ON DAY 1 OF CYCLE 1, FOLLOWED BY 420 MG Q3W IN SUBSEQUENT CYCLE
     Route: 042
     Dates: start: 20211224, end: 20211224
  15. XGEVA [Concomitant]
     Active Substance: DENOSUMAB
     Indication: Breast cancer
     Route: 058
     Dates: start: 20210728

REACTIONS (1)
  - Pneumonitis [Not Recovered/Not Resolved]

NARRATIVE: CASE EVENT DATE: 20220111
